FAERS Safety Report 23718204 (Version 1)
Quarter: 2024Q2

REPORT INFORMATION
  Report Type: Spontaneous
  Country: GB (occurrence: GB)
  Receive Date: 20240408
  Receipt Date: 20240408
  Transmission Date: 20240715
  Serious: Yes (Disabling)
  Sender: FDA-Public Use
  Company Number: None

PATIENT
  Age: 49 Year
  Sex: Female
  Weight: 64 kg

DRUGS (1)
  1. LAMOTRIGINE [Suspect]
     Active Substance: LAMOTRIGINE
     Route: 065

REACTIONS (11)
  - Tinnitus [Not Recovered/Not Resolved]
  - Memory impairment [Recovering/Resolving]
  - Osteoporosis [Not Recovered/Not Resolved]
  - Asthenia [Recovering/Resolving]
  - Initial insomnia [Recovering/Resolving]
  - Diplopia [Recovering/Resolving]
  - Cognitive disorder [Recovering/Resolving]
  - Back pain [Recovering/Resolving]
  - Arthralgia [Recovering/Resolving]
  - Deafness [Not Recovered/Not Resolved]
  - Anxiety [Recovering/Resolving]

NARRATIVE: CASE EVENT DATE: 20170330
